FAERS Safety Report 16141306 (Version 1)
Quarter: 2019Q2

REPORT INFORMATION
  Report Type: Spontaneous
  Country: US (occurrence: US)
  Receive Date: 20190331
  Receipt Date: 20190331
  Transmission Date: 20190711
  Serious: Yes (Other)
  Sender: FDA-Public Use
  Company Number: None

PATIENT
  Age: 26 Year
  Sex: Female
  Weight: 49.5 kg

DRUGS (7)
  1. OMEPRAZOLE. [Concomitant]
     Active Substance: OMEPRAZOLE
  2. PROCHLORPERAZINE. [Concomitant]
     Active Substance: PROCHLORPERAZINE
  3. INDOMETHACIN. [Concomitant]
     Active Substance: INDOMETHACIN
  4. MELATONIN [Concomitant]
     Active Substance: MELATONIN
  5. RIZATRIPTAN. [Concomitant]
     Active Substance: RIZATRIPTAN
  6. AVIANE [Concomitant]
     Active Substance: ETHINYL ESTRADIOL\LEVONORGESTREL
  7. ERENUMAB [Suspect]
     Active Substance: ERENUMAB
     Indication: MIGRAINE
     Dosage: ?          OTHER FREQUENCY:MONTHLY;?
     Route: 030
     Dates: start: 20180802, end: 20190219

REACTIONS (10)
  - Skin swelling [None]
  - Injection related reaction [None]
  - Pruritus [None]
  - Rash [None]
  - Paraesthesia [None]
  - Blister [None]
  - Erythema [None]
  - Throat irritation [None]
  - Hypoaesthesia oral [None]
  - Chest discomfort [None]

NARRATIVE: CASE EVENT DATE: 20190219
